FAERS Safety Report 6046276-9 (Version None)
Quarter: 2009Q1

REPORT INFORMATION
  Report Type: 
  Country: None (occurrence: None)
  Receive Date: 20090122
  Receipt Date: 20090113
  Transmission Date: 20090719
  Serious: Yes (Death, Hospitalization)
  Sender: FDA-Public Use
  Company Number: PT-BAXTER-2009BH000801

PATIENT
  Age: 6 Year
  Sex: Male

DRUGS (7)
  1. EXTRANEAL [Suspect]
     Indication: PERITONEAL DIALYSIS
     Route: 033
     Dates: start: 20060101
  2. PHYSIOSOL IN PLASTIC CONTAINER [Suspect]
     Indication: PERITONEAL DIALYSIS
     Route: 033
     Dates: start: 20060101
  3. CAPTOPRIL [Concomitant]
  4. POTASSIUM ION EXCHANGE RESIN [Concomitant]
  5. CARVEDILOL [Concomitant]
  6. EPOETIN NOS [Concomitant]
  7. VITAMIN B COMPLEX CAP [Concomitant]

REACTIONS (3)
  - CARDIAC DISORDER [None]
  - HEADACHE [None]
  - VOMITING [None]
